FAERS Safety Report 10768942 (Version 3)
Quarter: 2015Q1

REPORT INFORMATION
  Report Type: Report from Study
  Country: HU (occurrence: HU)
  Receive Date: 20150206
  Receipt Date: 20150211
  Transmission Date: 20150721
  Serious: Yes (Life-Threatening)
  Sender: FDA-Public Use
  Company Number: HU-ROCHE-1532615

PATIENT
  Age: 75 Year
  Sex: Female

DRUGS (21)
  1. TOCILIZUMAB [Suspect]
     Active Substance: TOCILIZUMAB
     Indication: RHEUMATOID ARTHRITIS
     Dosage: LAST DOSE PRIOR TO SAE : 8MG/KG GIVEN ON 20/JAN/2015
     Route: 042
  2. OBRADON [Concomitant]
     Active Substance: ATORVASTATIN CALCIUM
     Indication: HYPERTENSION
     Route: 048
     Dates: start: 2011
  3. ARAVA [Concomitant]
     Active Substance: LEFLUNOMIDE
     Indication: RHEUMATOID ARTHRITIS
     Route: 048
     Dates: start: 2003
  4. AMLIPIN [Concomitant]
     Indication: HYPERTENSION
     Route: 048
     Dates: start: 2011
  5. ASPIRIN PROTECT [Concomitant]
     Active Substance: ASPIRIN
     Indication: CORONARY ARTERY DISEASE
     Route: 048
     Dates: start: 2011
  6. ZOCOR FORTE [Concomitant]
     Indication: HYPERLIPIDAEMIA
     Route: 048
     Dates: start: 20111028
  7. NORMAFLORE (HUNGARY) [Concomitant]
     Indication: GASTRITIS
     Route: 048
     Dates: start: 20130403, end: 20130407
  8. PANTOPRAZOLE [Concomitant]
     Active Substance: PANTOPRAZOLE SODIUM
     Indication: PROPHYLAXIS
     Route: 048
     Dates: start: 20150122
  9. BETALOC ZOK [Concomitant]
     Active Substance: METOPROLOL SUCCINATE
     Indication: HYPERTENSION
     Route: 048
     Dates: start: 20121127, end: 20130116
  10. ATORVASTATIN [Concomitant]
     Active Substance: ATORVASTATIN
     Indication: PROPHYLAXIS
     Route: 048
     Dates: start: 20150122
  11. SILEGON [Concomitant]
     Indication: PROPHYLAXIS
     Route: 048
     Dates: start: 2011
  12. BETALOC ZOK [Concomitant]
     Active Substance: METOPROLOL SUCCINATE
     Route: 048
     Dates: start: 20130116
  13. NO-SPA FORTE [Concomitant]
     Active Substance: DROTAVERINE HYDROCHLORIDE
     Indication: GASTRITIS
     Route: 050
     Dates: start: 20130403, end: 20130407
  14. NORFLOXACIN [Concomitant]
     Active Substance: NORFLOXACIN
     Indication: CYSTITIS
     Route: 048
     Dates: start: 20140530
  15. BISOPROLOL [Concomitant]
     Active Substance: BISOPROLOL
     Indication: HYPERTENSION
     Route: 048
     Dates: start: 20150122
  16. CARDILOPIN [Concomitant]
     Indication: HYPERTENSION
     Route: 048
     Dates: start: 20121127
  17. METHYLPREDNISOLON [Concomitant]
     Active Substance: METHYLPREDNISOLONE
     Indication: RHEUMATOID ARTHRITIS
     Route: 048
     Dates: start: 20051007
  18. ACID FOLIC [Concomitant]
     Indication: RHEUMATOID ARTHRITIS
     Route: 048
     Dates: start: 20090521
  19. PORTIRON [Concomitant]
     Indication: CORONARY ARTERY DISEASE
     Route: 048
     Dates: start: 20111028
  20. NOACID (HUNGARY) [Concomitant]
     Indication: GASTRITIS
     Route: 048
     Dates: start: 20130403, end: 20130407
  21. DICLOFENAC [Concomitant]
     Active Substance: DICLOFENAC
     Indication: OSTEOARTHRITIS
     Dosage: SINGLE DOSE
     Route: 042
     Dates: start: 20140823, end: 20140823

REACTIONS (1)
  - Myocardial infarction [Recovered/Resolved]

NARRATIVE: CASE EVENT DATE: 20150121
